FAERS Safety Report 7121016-0 (Version None)
Quarter: 2010Q4

REPORT INFORMATION
  Report Type: 
  Country: None (occurrence: None)
  Receive Date: 20101124
  Receipt Date: 20101118
  Transmission Date: 20110411
  Serious: Yes (Life-Threatening)
  Sender: FDA-Public Use
  Company Number: CH-CELGENEUS-151-21880-10112095

PATIENT
  Age: 56 Year
  Sex: Male

DRUGS (8)
  1. REVLIMID [Suspect]
     Indication: MULTIPLE MYELOMA
     Route: 048
     Dates: start: 20090221, end: 20090511
  2. LYRICA [Concomitant]
     Route: 048
     Dates: end: 20090511
  3. CO-DAFALGAN [Concomitant]
     Route: 048
     Dates: end: 20090511
  4. NEXIUM [Concomitant]
     Route: 048
  5. APHENYLBARBIT [Concomitant]
     Route: 065
     Dates: end: 20100511
  6. BUPRENORPHINE [Concomitant]
     Route: 065
  7. DEXAMETHASONE [Concomitant]
     Indication: MULTIPLE MYELOMA
     Route: 048
     Dates: start: 20090221, end: 20090505
  8. TORASEM [Concomitant]
     Route: 065
     Dates: end: 20100511

REACTIONS (10)
  - ALVEOLITIS ALLERGIC [None]
  - BRONCHIAL HAEMORRHAGE [None]
  - BRONCHITIS [None]
  - CRITICAL ILLNESS POLYNEUROPATHY [None]
  - HAEMODIALYSIS [None]
  - MOBILITY DECREASED [None]
  - PLEURAL EFFUSION [None]
  - PNEUMONIA BACTERIAL [None]
  - RESPIRATORY FAILURE [None]
  - SEPSIS [None]
